FAERS Safety Report 13449547 (Version 1)
Quarter: 2017Q2

REPORT INFORMATION
  Report Type: Spontaneous
  Country: JP (occurrence: JP)
  Receive Date: 20170417
  Receipt Date: 20170417
  Transmission Date: 20170830
  Serious: Yes (Other)
  Sender: FDA-Public Use
  Company Number: JP-PFIZER INC-2017161257

PATIENT
  Age: 67 Year
  Sex: Male

DRUGS (2)
  1. PRECEDEX [Suspect]
     Active Substance: DEXMEDETOMIDINE HYDROCHLORIDE
     Indication: SEDATION
     Route: 042
  2. ACRINOL [Concomitant]

REACTIONS (3)
  - Skin necrosis [Unknown]
  - Infusion site extravasation [Unknown]
  - Haemorrhage subcutaneous [Unknown]
